FAERS Safety Report 8971941 (Version 2)
Quarter: 2012Q4

REPORT INFORMATION
  Report Type: 
  Country: IL (occurrence: IL)
  Receive Date: 20121218
  Receipt Date: 20121221
  Transmission Date: 20130627
  Serious: Yes (Other)
  Sender: FDA-Public Use
  Company Number: PHHY2012IL115796

PATIENT
  Age: 50 Year
  Sex: Male

DRUGS (4)
  1. CARBIDOPA, LEVODOPA [Suspect]
     Indication: PARKINSON^S DISEASE
     Dosage: 3/4 of a tablet five times daily
  2. PERGOLIDE [Suspect]
     Indication: PARKINSON^S DISEASE
     Dosage: 1 mg, TID
  3. AMANTADINE [Suspect]
     Indication: PARKINSON^S DISEASE
     Dosage: 100 mg, BID
  4. SELEGILINE [Suspect]
     Indication: PARKINSON^S DISEASE
     Dosage: 5 mg, BID

REACTIONS (2)
  - Hypersexuality [Recovered/Resolved]
  - Erectile dysfunction [Recovered/Resolved]
